FAERS Safety Report 6875889-7 (Version None)
Quarter: 2010Q3

REPORT INFORMATION
  Report Type: 
  Country: None (occurrence: None)
  Receive Date: 20100727
  Receipt Date: 20100716
  Transmission Date: 20110219
  Serious: Yes (Hospitalization)
  Sender: FDA-Public Use
  Company Number: JP-ASTRAZENECA-2010SE30216

PATIENT
  Age: 82 Year
  Sex: Female
  Weight: 40 kg

DRUGS (5)
  1. OMEPRAL [Suspect]
     Indication: REFLUX OESOPHAGITIS
     Route: 048
     Dates: start: 20051222, end: 20100426
  2. NORVASC [Concomitant]
     Route: 048
     Dates: start: 20010101
  3. CANDESARTAN CILEXETIL [Concomitant]
     Route: 048
     Dates: start: 20040304, end: 20080314
  4. DOXAZOSIN MESYLATE [Concomitant]
     Route: 048
     Dates: start: 20040513, end: 20090227
  5. FLUITRAN [Concomitant]
     Route: 048
     Dates: start: 20050523, end: 20080314

REACTIONS (1)
  - COLITIS COLLAGENOUS [None]
